FAERS Safety Report 5576973-0 (Version None)
Quarter: 2007Q4

REPORT INFORMATION
  Report Type: 
  Country: None (occurrence: None)
  Receive Date: 20071228
  Receipt Date: 20071220
  Transmission Date: 20080405
  Serious: Yes (Other)
  Sender: FDA-Public Use
  Company Number: AU-AVENTIS-200721687GDDC

PATIENT
  Age: 48 Year
  Sex: Female

DRUGS (2)
  1. LANTUS [Suspect]
     Route: 058
     Dates: start: 20070920
  2. ALL OTHER THERAPEUTIC PRODUCTS [Suspect]

REACTIONS (3)
  - DRUG INTERACTION [None]
  - MALAISE [None]
  - PANCREATIC CARCINOMA [None]
